FAERS Safety Report 7222889-3 (Version None)
Quarter: 2011Q1

REPORT INFORMATION
  Report Type: 
  Country: None (occurrence: None)
  Receive Date: 20110106
  Receipt Date: 20110106
  Transmission Date: 20110831
  Serious: Yes (Hospitalization)
  Sender: FDA-Public Use
  Company Number: None

PATIENT
  Age: 75 Year
  Sex: Female
  Weight: 52.4 kg

DRUGS (14)
  1. OMEPRAZOLE [Concomitant]
  2. LIPITOR [Concomitant]
  3. TRAMADOL HCL [Concomitant]
  4. LISINOPRIL [Concomitant]
  5. M.V.I. [Concomitant]
  6. ACTOS [Concomitant]
  7. COLACE [Concomitant]
  8. NITROGLYCERIN [Concomitant]
  9. METOPROLOL SUCC [Concomitant]
  10. ASPIRIN [Suspect]
     Indication: CORONARY ARTERY DISEASE
     Dosage: 81MG DAILY PO (RECENT)
     Route: 048
  11. PLAVIX [Suspect]
     Indication: CORONARY ARTERY DISEASE
     Dosage: 75MG DAILY PO (RECENT)
     Route: 048
  12. FERROUS SULFATE TAB [Concomitant]
  13. LASIX [Concomitant]
  14. GALANTAMINE HYDROBROMIDE [Concomitant]

REACTIONS (4)
  - ANAEMIA [None]
  - GASTROINTESTINAL ARTERIOVENOUS MALFORMATION [None]
  - SMALL INTESTINAL HAEMORRHAGE [None]
  - GASTRIC DISORDER [None]
